FAERS Safety Report 5999747-5 (Version None)
Quarter: 2008Q4

REPORT INFORMATION
  Report Type: 
  Country: None (occurrence: None)
  Receive Date: 20081215
  Receipt Date: 20081203
  Transmission Date: 20090506
  Serious: Yes (Other)
  Sender: FDA-Public Use
  Company Number: BR-PFIZER INC-2008098423

PATIENT

DRUGS (1)
  1. FELDENE [Suspect]
     Indication: ABDOMINAL PAIN
     Route: 048
     Dates: start: 20081107, end: 20081109

REACTIONS (4)
  - BURNING SENSATION [None]
  - PYREXIA [None]
  - RASH MACULOVESICULAR [None]
  - SUFFOCATION FEELING [None]
